FAERS Safety Report 9368745 (Version 6)
Quarter: 2014Q1

REPORT INFORMATION
  Report Type: Spontaneous
  Country: JP (occurrence: JP)
  Receive Date: 20130626
  Receipt Date: 20140305
  Transmission Date: 20141002
  Serious: Yes (Other)
  Sender: FDA-Public Use
  Company Number: JP-AMGEN-JPNSP2013044139

PATIENT
  Age: 68 Year
  Sex: Male
  Weight: 65 kg

DRUGS (12)
  1. RANMARK [Suspect]
     Indication: PROSTATE CANCER
     Dosage: 120 MG, QMO/SINGLE DOSE: UNKNOWN, ONCE A MONTH
     Route: 058
     Dates: start: 20130108
  2. ZOMETA [Suspect]
     Indication: PRODUCT USED FOR UNKNOWN INDICATION
     Route: 041
     Dates: start: 20100817, end: 20121224
  3. DECADRON                           /00016001/ [Concomitant]
     Route: 048
  4. HARNAL D [Concomitant]
     Route: 048
  5. MAGMITT [Concomitant]
     Route: 048
  6. ALFAROL [Concomitant]
     Route: 048
  7. CALCIUM LACTATE [Concomitant]
     Dosage: POW
     Route: 048
  8. BAYASPIRIN [Concomitant]
     Route: 048
  9. DIOVAN [Concomitant]
     Route: 048
  10. AMLODIPINE [Concomitant]
     Route: 048
  11. DOCETAXEL [Concomitant]
     Route: 041
  12. FENTANYL [Concomitant]
     Route: 042
     Dates: start: 20100907, end: 20100907

REACTIONS (1)
  - Osteomyelitis [Not Recovered/Not Resolved]
